FAERS Safety Report 7204164-6 (Version None)
Quarter: 2010Q4

REPORT INFORMATION
  Report Type: 
  Country: None (occurrence: None)
  Receive Date: 20101230
  Receipt Date: 20101221
  Transmission Date: 20110411
  Serious: Yes (Death, Hospitalization)
  Sender: FDA-Public Use
  Company Number: DE-ROCHE-742334

PATIENT
  Sex: Male
  Weight: 105 kg

DRUGS (4)
  1. BEVACIZUMAB [Suspect]
     Indication: RECTAL CANCER METASTATIC
     Dosage: CURRENTLY 10TH CYCLE
     Route: 042
     Dates: start: 20090625
  2. IRINOTECAN HCL [Concomitant]
     Indication: RECTAL CANCER METASTATIC
     Dosage: CURRENTLY 10TH CYCLE, GIVEN ACCORDING TO FOLFIRI REGIMEN
     Route: 042
     Dates: start: 20090625
  3. FOLINIC ACID [Concomitant]
     Indication: RECTAL CANCER METASTATIC
     Dosage: CURRENTLY 10TH CYCLE, GIVEN ACCORDING TO FOLFIRI REGIMEN
     Route: 042
     Dates: start: 20090625
  4. FLUOROURACIL [Concomitant]
     Indication: RECTAL CANCER METASTATIC
     Dosage: CURRENTLY 10TH CYCLE, GIVEN ACCORDING TO FOLFIRI REGIMEN
     Route: 042
     Dates: start: 20090625

REACTIONS (6)
  - ANAEMIA [None]
  - DEATH [None]
  - GASTROOESOPHAGEAL REFLUX DISEASE [None]
  - HIATUS HERNIA [None]
  - UPPER GASTROINTESTINAL HAEMORRHAGE [None]
  - URETHRITIS [None]
